FAERS Safety Report 8196179-9 (Version None)
Quarter: 2012Q1

REPORT INFORMATION
  Report Type: 
  Country: None (occurrence: None)
  Receive Date: 20120309
  Receipt Date: 20120227
  Transmission Date: 20120608
  Serious: Yes (Hospitalization)
  Sender: FDA-Public Use
  Company Number: DE-RANBAXY-2009RR-25653

PATIENT
  Age: 75 Year
  Sex: Male
  Weight: 87 kg

DRUGS (7)
  1. ENOXAPARIN SODIUM [Concomitant]
     Indication: PRODUCT USED FOR UNKNOWN INDICATION
     Route: 065
  2. ASPIRIN [Suspect]
     Indication: CORONARY ARTERY DISEASE
     Dosage: 100 MG, QD
     Route: 048
     Dates: start: 20080901
  3. SIMVASTATIN [Suspect]
     Indication: HYPERLIPIDAEMIA
     Dosage: UNK
     Route: 048
     Dates: start: 20080901
  4. FALITHROM [Suspect]
     Indication: ATRIAL FIBRILLATION
     Dosage: UNK
     Route: 065
     Dates: start: 20080901, end: 20081204
  5. RAMIPRIL [Concomitant]
     Indication: HYPERTENSION
     Dosage: UNK
     Route: 048
     Dates: start: 20080901
  6. CLOPIDOGREL BISULFATE [Suspect]
     Indication: CORONARY ARTERY DISEASE
     Dosage: UNK
     Route: 048
     Dates: start: 20080901, end: 20081109
  7. METOPROLOL SUCCINATE [Concomitant]
     Indication: CORONARY ARTERY DISEASE
     Dosage: UNK
     Route: 048
     Dates: start: 20080901

REACTIONS (2)
  - DRUG INTERACTION [None]
  - OESOPHAGITIS HAEMORRHAGIC [None]
